FAERS Safety Report 6722527-X (Version None)
Quarter: 2010Q2

REPORT INFORMATION
  Report Type: 
  Country: None (occurrence: None)
  Receive Date: 20100512
  Receipt Date: 20100503
  Transmission Date: 20101027
  Serious: Yes (Life-Threatening)
  Sender: FDA-Public Use
  Company Number: CA-ROCHE-700756

PATIENT
  Age: 19 Year
  Sex: Male

DRUGS (1)
  1. ACCUTANE [Suspect]
     Indication: DRUG USE FOR UNKNOWN INDICATION
     Route: 065

REACTIONS (23)
  - ABDOMINAL PAIN UPPER [None]
  - AFFECT LABILITY [None]
  - AGGRESSION [None]
  - CONSTIPATION [None]
  - CRYING [None]
  - DECREASED APPETITE [None]
  - DEPENDENCE [None]
  - DEPRESSED MOOD [None]
  - DEPRESSION [None]
  - DIARRHOEA [None]
  - DRY EYE [None]
  - DRY MOUTH [None]
  - DRY SKIN [None]
  - EMOTIONAL DISORDER [None]
  - EYE PAIN [None]
  - FEELING GUILTY [None]
  - FEELINGS OF WORTHLESSNESS [None]
  - INSOMNIA [None]
  - MOOD ALTERED [None]
  - NEGATIVE THOUGHTS [None]
  - STRESS [None]
  - SUICIDAL IDEATION [None]
  - THINKING ABNORMAL [None]
